FAERS Safety Report 10362296 (Version 1)
Quarter: 2014Q3

REPORT INFORMATION
  Report Type: Spontaneous
  Country: US (occurrence: None)
  Receive Date: 20140804
  Receipt Date: 20140804
  Transmission Date: 20150326
  Serious: Yes (Death, Hospitalization)
  Sender: FDA-Public Use
  Company Number: None

PATIENT
  Age: 72 Year
  Sex: Female
  Weight: 53.52 kg

DRUGS (2)
  1. CISPLATIN. [Suspect]
     Active Substance: CISPLATIN
     Indication: HYPOPHARYNGEAL CANCER
     Dates: start: 20140616, end: 20140710
  2. VORINOSTAT [Suspect]
     Active Substance: VORINOSTAT
     Indication: HYPOPHARYNGEAL CANCER
     Route: 048
     Dates: start: 20140609, end: 20140710

REACTIONS (11)
  - Acute respiratory failure [None]
  - Atrial fibrillation [None]
  - Unresponsive to stimuli [None]
  - Febrile neutropenia [None]
  - Abdominal pain upper [None]
  - Acute myocardial infarction [None]
  - Mental status changes [None]
  - Colostomy [None]
  - Diarrhoea [None]
  - Peripheral vascular disorder [None]
  - Ileostomy [None]

NARRATIVE: CASE EVENT DATE: 20140720
